FAERS Safety Report 12235682 (Version 1)
Quarter: 2016Q2

REPORT INFORMATION
  Report Type: Spontaneous
  Country: US (occurrence: US)
  Receive Date: 20160404
  Receipt Date: 20160404
  Transmission Date: 20160815
  Serious: No
  Sender: FDA-Public Use
  Company Number: US-INVAGEN PHARMACEUTICALS, INC.-1050190

PATIENT
  Age: 72 Year
  Sex: Female
  Weight: 45.46 kg

DRUGS (6)
  1. PRAVASTATIN [Concomitant]
     Active Substance: PRAVASTATIN\PRAVASTATIN SODIUM
  2. METOPROLOL SUCCINATE. [Concomitant]
     Active Substance: METOPROLOL SUCCINATE
  3. CELEBREX [Concomitant]
     Active Substance: CELECOXIB
  4. ATENOLOL. [Concomitant]
     Active Substance: ATENOLOL
  5. DONEPEZIL. [Concomitant]
     Active Substance: DONEPEZIL
  6. SERTRALINE [Suspect]
     Active Substance: SERTRALINE HYDROCHLORIDE
     Indication: DEPRESSION
     Route: 048

REACTIONS (1)
  - Urinary incontinence [Unknown]
